FAERS Safety Report 8249751-1 (Version None)
Quarter: 2012Q2

REPORT INFORMATION
  Report Type: 
  Country: None (occurrence: None)
  Receive Date: 20120402
  Receipt Date: 20120322
  Transmission Date: 20120825
  Serious: Yes (Hospitalization)
  Sender: FDA-Public Use
  Company Number: PHEH2009US13226

PATIENT
  Sex: Female

DRUGS (2)
  1. EXJADE [Suspect]
     Indication: IRON OVERLOAD
     Dosage: 2000 MG, DAILY
     Route: 048
     Dates: start: 20060101
  2. EXJADE [Suspect]
     Dosage: 2000 MG, DAILY
     Route: 048

REACTIONS (2)
  - SICKLE CELL ANAEMIA WITH CRISIS [None]
  - ABDOMINAL DISCOMFORT [None]
